FAERS Safety Report 7750072-1 (Version None)
Quarter: 2011Q3

REPORT INFORMATION
  Report Type: 
  Country: None (occurrence: None)
  Receive Date: 20110914
  Receipt Date: 20110912
  Transmission Date: 20111222
  Serious: Yes (Life-Threatening, Disabling)
  Sender: FDA-Public Use
  Company Number: NO-PFIZER INC-2011213598

PATIENT
  Sex: Female

DRUGS (1)
  1. CYTOTEC [Suspect]
     Dosage: 25 UG, 2X/DAY
     Route: 064
     Dates: start: 20090520, end: 20090520

REACTIONS (2)
  - ASPHYXIA [None]
  - CEREBRAL PALSY [None]
